FAERS Safety Report 21741271 (Version 3)
Quarter: 2023Q2

REPORT INFORMATION
  Report Type: Spontaneous
  Country: US (occurrence: US)
  Receive Date: 20221216
  Receipt Date: 20230406
  Transmission Date: 20230722
  Serious: No
  Sender: FDA-Public Use
  Company Number: US-PFIZER INC-PV202200125009

PATIENT
  Age: 43 Year
  Sex: Female

DRUGS (3)
  1. IBRANCE [Suspect]
     Active Substance: PALBOCICLIB
     Dosage: 125 MG
  2. IBRANCE [Suspect]
     Active Substance: PALBOCICLIB
     Dosage: 125 MG, 3 WEEKS ON 1 WEEK OFF
  3. IBRANCE [Suspect]
     Active Substance: PALBOCICLIB
     Dosage: 125 MG, 2 WEEKS ON 1 WEEK OFF

REACTIONS (5)
  - Fatigue [Recovered/Resolved]
  - Nausea [Unknown]
  - Headache [Recovering/Resolving]
  - Somnolence [Unknown]
  - White blood cell count decreased [Unknown]
